FAERS Safety Report 8485553-9 (Version None)
Quarter: 2012Q2

REPORT INFORMATION
  Report Type: 
  Country: None (occurrence: None)
  Receive Date: 20120627
  Receipt Date: 20120627
  Transmission Date: 20120825
  Serious: Yes (Other)
  Sender: FDA-Public Use
  Company Number: None

PATIENT
  Age: 58 Year
  Sex: Female
  Weight: 127.0072 kg

DRUGS (1)
  1. DEFINITY [Suspect]
     Indication: ECHOCARDIOGRAM
     Dates: start: 20100714, end: 20100714

REACTIONS (4)
  - UNRESPONSIVE TO STIMULI [None]
  - MYOCLONUS [None]
  - TEMPORAL LOBE EPILEPSY [None]
  - TARDIVE DYSKINESIA [None]
